FAERS Safety Report 6148688-1 (Version None)
Quarter: 2009Q2

REPORT INFORMATION
  Report Type: 
  Country: None (occurrence: None)
  Receive Date: 20090406
  Receipt Date: 20090406
  Transmission Date: 20091009
  Serious: Yes (Other)
  Sender: FDA-Public Use
  Company Number: None

PATIENT
  Age: 49 Year
  Sex: Male
  Weight: 102.0593 kg

DRUGS (2)
  1. LIPITOR [Suspect]
     Indication: BLOOD CHOLESTEROL INCREASED
     Dosage: 20 DAILY PO
     Route: 048
     Dates: start: 20060101, end: 20071231
  2. ZOCOR [Suspect]
     Indication: BLOOD CHOLESTEROL INCREASED
     Dosage: 20/ 40 DAILY PO
     Route: 048
     Dates: start: 20070101, end: 20080601

REACTIONS (4)
  - AMNESIA [None]
  - ARTHRALGIA [None]
  - MUSCULAR WEAKNESS [None]
  - MYALGIA [None]
